FAERS Safety Report 17622978 (Version 3)
Quarter: 2020Q2

REPORT INFORMATION
  Report Type: Spontaneous
  Country: CO (occurrence: CO)
  Receive Date: 20200403
  Receipt Date: 20200519
  Transmission Date: 20200713
  Serious: Yes (Death, Other)
  Sender: FDA-Public Use
  Company Number: CO-AMGEN-COLSP2020010208

PATIENT
  Age: 71 Year
  Sex: Female

DRUGS (9)
  1. ACETAMINOPHEN. [Concomitant]
     Active Substance: ACETAMINOPHEN
     Dosage: 2 DF, 2X/DAY
  2. ACETAMINOPHEN. [Concomitant]
     Active Substance: ACETAMINOPHEN
     Dosage: 6 DF, DAILY
  3. TRAMADOL. [Concomitant]
     Active Substance: TRAMADOL
     Dosage: 20 DROPS, 2X/DAY
     Dates: start: 201910
  4. DEFLAZACORT [Concomitant]
     Active Substance: DEFLAZACORT
     Indication: PAIN
     Dosage: 1 DF, DAILY
  5. METHOTREXATE. [Concomitant]
     Active Substance: METHOTREXATE
     Dosage: 1 DF, WEEKLY
     Dates: start: 201911
  6. FOLIC ACID. [Concomitant]
     Active Substance: FOLIC ACID
     Dosage: 5 MG, WEEKLY
     Dates: start: 201910
  7. ACETAMINOPHEN. [Concomitant]
     Active Substance: ACETAMINOPHEN
     Dosage: 2 DF, 2X/DAY
  8. ENBREL [Suspect]
     Active Substance: ETANERCEPT
     Indication: RHEUMATOID ARTHRITIS
     Dosage: 50 MG, WEEKLY
     Route: 058
     Dates: start: 201911
  9. ENBREL [Suspect]
     Active Substance: ETANERCEPT
     Dosage: 50 MG, WEEKLY
     Route: 058
     Dates: start: 200410, end: 201910

REACTIONS (13)
  - Death [Fatal]
  - Malaise [Unknown]
  - Osteoarthritis [Unknown]
  - Neuralgia [Unknown]
  - Depression [Unknown]
  - Mobility decreased [Unknown]
  - Drug ineffective [Unknown]
  - Osteoporosis [Unknown]
  - Herpes zoster [Recovered/Resolved with Sequelae]
  - Decreased appetite [Unknown]
  - Fatigue [Unknown]
  - Condition aggravated [Unknown]
  - Impaired quality of life [Unknown]

NARRATIVE: CASE EVENT DATE: 20191006
